FAERS Safety Report 5927348-3 (Version None)
Quarter: 2008Q4

REPORT INFORMATION
  Report Type: 
  Country: None (occurrence: None)
  Receive Date: 20081021
  Receipt Date: 20081008
  Transmission Date: 20090506
  Serious: Yes (Hospitalization)
  Sender: FDA-Public Use
  Company Number: D-08-0077

PATIENT
  Age: 85 Year
  Sex: Female

DRUGS (7)
  1. JANTOVEN [Suspect]
     Indication: ATRIAL FIBRILLATION
     Dosage: 2.5MG, QD, PO
     Route: 048
     Dates: start: 20080917, end: 20081007
  2. JANTOVEN [Suspect]
     Dosage: 1.25 MG ON MONDAY AND FRIDAY, 2.5 MG ON ALL OTHER DAYS OF THE WEEK, PO
     Route: 048
     Dates: start: 20080101, end: 20080916
  3. AMLODIPINE BESYLATE [Concomitant]
  4. HYDROCHLOROTHIAZIDE [Concomitant]
  5. METOPROLOL TARTRATE [Concomitant]
  6. POTASSIUM CHLORIDE [Concomitant]
  7. SIMVASTATIN [Concomitant]

REACTIONS (3)
  - HAEMORRHAGE [None]
  - INTERNATIONAL NORMALISED RATIO INCREASED [None]
  - NEPHROLITHIASIS [None]
